FAERS Safety Report 11575206 (Version 1)
Quarter: 2015Q3

REPORT INFORMATION
  Report Type: Spontaneous
  Country: US (occurrence: None)
  Receive Date: 20150929
  Receipt Date: 20150929
  Transmission Date: 20151125
  Serious: No
  Sender: FDA-Public Use
  Company Number: None

PATIENT
  Age: 70 Year
  Sex: Female
  Weight: 58.97 kg

DRUGS (13)
  1. ALENDRONATE [Suspect]
     Active Substance: ALENDRONATE SODIUM
     Indication: OSTEOPENIA
     Dosage: 1 PILL
     Route: 048
     Dates: start: 20150903, end: 20150924
  2. D-3 [Concomitant]
     Active Substance: CHOLECALCIFEROL
  3. GLUCOSAMINE/CHONDROITEN [Concomitant]
  4. PRO-BIOTIC [Concomitant]
  5. S-ADENOSYLMETHIONINE SULFATE P-TOLUENESULFONATE [Concomitant]
     Active Substance: ADEMETIONINE SULFATE TOSILATE
  6. GUIFENNESEN [Concomitant]
  7. FLEXERIL [Concomitant]
     Active Substance: CYCLOBENZAPRINE HYDROCHLORIDE
  8. CALCIUM [Concomitant]
     Active Substance: CALCIUM
  9. BABY ASPIRIN [Concomitant]
     Active Substance: ASPIRIN
  10. OXYGEN. [Concomitant]
     Active Substance: OXYGEN
  11. NEURONTIN [Concomitant]
     Active Substance: GABAPENTIN
  12. SINGULAIR [Concomitant]
     Active Substance: MONTELUKAST SODIUM
  13. MAGNESIUM [Concomitant]
     Active Substance: MAGNESIUM

REACTIONS (2)
  - Abdominal pain upper [None]
  - Myalgia [None]

NARRATIVE: CASE EVENT DATE: 20150924
